FAERS Safety Report 5886629-2 (Version None)
Quarter: 2008Q3

REPORT INFORMATION
  Report Type: 
  Country: None (occurrence: None)
  Receive Date: 20080917
  Receipt Date: 20080908
  Transmission Date: 20090109
  Serious: Yes (Hospitalization, Other)
  Sender: FDA-Public Use
  Company Number: PHHY2008DE11494

PATIENT
  Sex: Male

DRUGS (6)
  1. ZOMETA [Suspect]
     Indication: PLASMACYTOMA
     Dosage: 4 MG, QMO
     Route: 042
     Dates: start: 20051101, end: 20080101
  2. MELPHALAN [Concomitant]
     Indication: PLASMACYTOMA
     Dosage: 2*100 MG/ M^2
     Dates: start: 20060301
  3. MELPHALAN [Concomitant]
     Dosage: 2*100 MG/M^2
     Dates: start: 20080201
  4. REVLIMID/DEXAMETHASONE [Concomitant]
     Indication: PLASMACYTOMA
     Dosage: 3 CYCLES
     Dates: start: 20071001, end: 20071201
  5. DEXAMETHASONE W/DOXORUBICIN/VINCRISTINE [Concomitant]
     Indication: PLASMACYTOMA
     Dosage: 3 CYCLES
     Dates: start: 20051001, end: 20051201
  6. VINCRISTINE + ADRIAMYCIN + DEXAMETHASONE [Concomitant]
     Indication: BREAST CANCER

REACTIONS (8)
  - BIOPSY SITE UNSPECIFIED ABNORMAL [None]
  - COMPUTERISED TOMOGRAM ABNORMAL [None]
  - JAW OPERATION [None]
  - OSTEOMYELITIS CHRONIC [None]
  - OSTEONECROSIS [None]
  - PERIODONTITIS [None]
  - STEM CELL TRANSPLANT [None]
  - TOOTH EXTRACTION [None]
